FAERS Safety Report 9060975 (Version 2)
Quarter: 2013Q1

REPORT INFORMATION
  Report Type: Spontaneous
  Country: US (occurrence: US)
  Receive Date: 20130213
  Receipt Date: 20130306
  Transmission Date: 20140127
  Serious: Yes (Death, Other)
  Sender: FDA-Public Use
  Company Number: US-AMGEN-USASP2013009099

PATIENT
  Age: 75 Year
  Sex: Female
  Weight: 51.7 kg

DRUGS (21)
  1. XGEVA [Suspect]
     Indication: PRODUCT USED FOR UNKNOWN INDICATION
     Dosage: 120 MG, Q4WK
     Route: 058
     Dates: start: 20120131, end: 20121127
  2. ZOMETA [Concomitant]
     Dosage: UNK UNK, Q4WK
     Route: 042
  3. ARIMIDEX [Concomitant]
     Indication: NEOPLASM MALIGNANT
     Dosage: 1 MG, QD
  4. MEGACE [Concomitant]
  5. LASIX                              /00032601/ [Concomitant]
     Dosage: 40 MG, QD
     Route: 048
  6. MG [Concomitant]
  7. ZOFRAN                             /00955301/ [Concomitant]
     Indication: NAUSEA
     Dosage: 8 MG, UNK
  8. PREVACID [Concomitant]
     Dosage: 20 G, UNK
  9. ZOLOFT [Concomitant]
     Indication: DEPRESSION
     Dosage: 50 MG, QD
     Route: 048
  10. AMLODIPINE [Concomitant]
     Indication: BLOOD PRESSURE
     Dosage: Q2.5 G, QD
     Route: 048
  11. DIGOXIN [Concomitant]
     Dosage: 125 MUG, QOD
     Route: 048
  12. CLEARLAX [Concomitant]
     Dosage: 17 G, AS NECESSARY
     Route: 048
  13. SPIRONOLACTONE [Concomitant]
     Dosage: 25 MG, QD
     Route: 048
  14. CARVEDILOL [Concomitant]
     Indication: HYPERTENSION
     Dosage: UNK MG, BID
     Route: 048
  15. CARVEDILOL [Concomitant]
     Indication: CARDIAC FAILURE CONGESTIVE
  16. MAG-OX [Concomitant]
     Dosage: 400 MG, QD
     Route: 048
  17. KLOR CON [Concomitant]
     Dosage: 20 MEQ, QD
  18. FOLIC ACID [Concomitant]
     Dosage: 1 MG, QD
  19. PANTOPRAZOLE [Concomitant]
     Dosage: 40 MG, UNK
     Route: 048
  20. NEXIUM                             /01479302/ [Concomitant]
  21. SODIUM BICARBONATE [Concomitant]
     Indication: FLATULENCE
     Dosage: 650 MG, BID
     Route: 048

REACTIONS (24)
  - Death [Fatal]
  - Cardiac failure congestive [Recovering/Resolving]
  - Coma [Unknown]
  - Atelectasis [Unknown]
  - Abdominal pain upper [Unknown]
  - Asthenia [Unknown]
  - Hepatitis [Unknown]
  - Fatigue [Unknown]
  - Weight increased [Unknown]
  - Nausea [Unknown]
  - Oral pain [Unknown]
  - Pollakiuria [Unknown]
  - Gait disturbance [Unknown]
  - Tinnitus [Unknown]
  - Pruritus [Unknown]
  - Headache [Unknown]
  - Decreased appetite [Unknown]
  - Constipation [Unknown]
  - Vulvovaginal dryness [Unknown]
  - Hot flush [Unknown]
  - Arthralgia [Unknown]
  - Back pain [Unknown]
  - Paraesthesia [Unknown]
  - Hyponatraemia [Unknown]
